FAERS Safety Report 18871513 (Version 9)
Quarter: 2021Q4

REPORT INFORMATION
  Report Type: Spontaneous
  Country: GB (occurrence: GB)
  Receive Date: 20210210
  Receipt Date: 20211006
  Transmission Date: 20220303
  Serious: Yes (Death, Life-Threatening, Hospitalization, Disabling, Other)
  Sender: FDA-Public Use
  Company Number: None

PATIENT
  Age: 5 Year
  Sex: Male
  Weight: 9.7 kg

DRUGS (24)
  1. AMOXICILLIN\CLAVULANIC ACID [Suspect]
     Active Substance: AMOXICILLIN\CLAVULANIC ACID
     Indication: Pneumonia
  2. PENICILLIN V [Suspect]
     Active Substance: PENICILLIN V
  3. AMOXICILLIN [Suspect]
     Active Substance: AMOXICILLIN
  4. CLAVULANIC ACID [Suspect]
     Active Substance: CLAVULANIC ACID
  5. ALBUTEROL [Suspect]
     Active Substance: ALBUTEROL
  6. FENTANYL [Suspect]
     Active Substance: FENTANYL
  7. CIPROFLOXACIN [Suspect]
     Active Substance: CIPROFLOXACIN
  8. PULMOZYME [Suspect]
     Active Substance: DORNASE ALFA
  9. SODIUM CITRATE [Suspect]
     Active Substance: SODIUM CITRATE
  10. SODIUM CHLORIDE [Suspect]
     Active Substance: SODIUM CHLORIDE
  11. VENTOLIN HFA [Suspect]
     Active Substance: ALBUTEROL SULFATE
  12. UNSPECIFIED INGREDIENT [Suspect]
     Active Substance: UNSPECIFIED INGREDIENT
  13. PROPOFOL [Suspect]
     Active Substance: PROPOFOL
  14. POTASSIUM CHLORIDE [Suspect]
     Active Substance: POTASSIUM CHLORIDE
  15. PIPERACILLIN AND TAZOBACTAM [Suspect]
     Active Substance: PIPERACILLIN SODIUM\TAZOBACTAM SODIUM
  16. UNSPECIFIED INGREDIENT [Suspect]
     Active Substance: UNSPECIFIED INGREDIENT
  17. MEROPENEM [Suspect]
     Active Substance: MEROPENEM
  18. M-M-RVAXPRO [Suspect]
     Active Substance: MEASLES VIRUS STRAIN ENDERS^ ATTENUATED EDMONSTON LIVE ANTIGEN\MUMPS VIRUS STRAIN B LEVEL JERYL LYNN
  19. DEXTROSE\POTASSIUM CHLORIDE\SODIUM CHLORIDE\SODIUM CITRATE [Suspect]
     Active Substance: DEXTROSE\POTASSIUM CHLORIDE\SODIUM CHLORIDE\SODIUM CITRATE
  20. GENTAMICIN [Suspect]
     Active Substance: GENTAMICIN
     Route: 042
  21. DURAGESIC [Suspect]
     Active Substance: FENTANYL
  22. DORNASE ALFA [Suspect]
     Active Substance: DORNASE ALFA
  23. CEFUROXIME AXETIL [Suspect]
     Active Substance: CEFUROXIME AXETIL
     Route: 042
  24. PENICILLIN G [Suspect]
     Active Substance: PENICILLIN G

REACTIONS (50)
  - Lymphadenectomy [Fatal]
  - Ischaemic cerebral infarction [Fatal]
  - Intestinal ischaemia [Fatal]
  - Atelectasis [Fatal]
  - Respiratory arrest [Fatal]
  - Spinal muscular atrophy [Fatal]
  - Pneumonia aspiration [Fatal]
  - Pneumococcal sepsis [Fatal]
  - Lung infiltration [Fatal]
  - Brain injury [Fatal]
  - Bronchial disorder [Fatal]
  - Lung consolidation [Fatal]
  - Circulatory collapse [Fatal]
  - Cerebral ischaemia [Fatal]
  - Condition aggravated [Fatal]
  - Dyspnoea [Fatal]
  - Injury [Fatal]
  - Interstitial lung disease [Fatal]
  - Disease complication [Fatal]
  - Pneumonia [Fatal]
  - Brain injury [Fatal]
  - Increased bronchial secretion [Fatal]
  - Pyrexia [Fatal]
  - Lower respiratory tract infection bacterial [Fatal]
  - Inflammation [Fatal]
  - Dehydration [Fatal]
  - Tachypnoea [Fatal]
  - Vomiting [Fatal]
  - Metabolic disorder [Fatal]
  - Diarrhoea [Fatal]
  - Positive airway pressure therapy [Fatal]
  - Dysphagia [Fatal]
  - Dyspnoea [Fatal]
  - Endotracheal intubation [Fatal]
  - Secretion discharge [Fatal]
  - Mechanical ventilation [Fatal]
  - Resuscitation [Fatal]
  - Scoliosis [Fatal]
  - Ascites [Fatal]
  - Stoma closure [Fatal]
  - Demyelination [Fatal]
  - Motor neurone disease [Fatal]
  - Muscle atrophy [Fatal]
  - Muscular weakness [Fatal]
  - Malaise [Fatal]
  - Chest X-ray abnormal [Fatal]
  - Motor dysfunction [Fatal]
  - Sputum increased [Fatal]
  - Intestinal ischaemia [Fatal]
  - Dysphagia [Fatal]

NARRATIVE: CASE EVENT DATE: 20160620
